FAERS Safety Report 9265443 (Version 5)
Quarter: 2013Q3

REPORT INFORMATION
  Report Type: Spontaneous
  Country: US (occurrence: US)
  Receive Date: 20130501
  Receipt Date: 20130812
  Transmission Date: 20140515
  Serious: Yes (Other)
  Sender: FDA-Public Use
  Company Number: US-TEVA-401695USA

PATIENT
  Sex: Male

DRUGS (1)
  1. AMPHETAMINE W/DEXTROAMPHETAMINE [Suspect]
     Dosage: 60 MILLIGRAM DAILY;

REACTIONS (3)
  - Mental impairment [Unknown]
  - Feeling jittery [Unknown]
  - Drug ineffective [Unknown]
